FAERS Safety Report 10955338 (Version 1)
Quarter: 2015Q1

REPORT INFORMATION
  Report Type: Spontaneous
  Country: FR (occurrence: FR)
  Receive Date: 20150326
  Receipt Date: 20150326
  Transmission Date: 20150721
  Serious: Yes (Other)
  Sender: FDA-Public Use
  Company Number: FR-CIPLA LTD.-2015FR02117

PATIENT

DRUGS (4)
  1. LEUCOVORIN [Suspect]
     Active Substance: LEUCOVORIN
     Indication: COLORECTAL CANCER
     Dosage: 200 MG/M2, OVER A 2-HOUR IV INFUSION
  2. 5FLUROURACIL [Suspect]
     Active Substance: FLUOROURACIL
     Dosage: 600 MG/M2, DAYS 1 AND 2, EVERY 2 WEEKS, FOR 12 CYCLES
  3. 5FLUROURACIL [Suspect]
     Active Substance: FLUOROURACIL
     Indication: COLORECTAL CANCER
     Dosage: DAYS 1 AND 2, EVERY 2 WEEKS, FOR 12 CYCLES400 MG/M2
  4. IRINOTECAN [Suspect]
     Active Substance: IRINOTECAN
     Indication: COLORECTAL CANCER
     Dosage: 180 MG/M2, OVER 1-HOUR

REACTIONS (1)
  - Skin toxicity [Unknown]
